FAERS Safety Report 24830105 (Version 2)
Quarter: 2025Q1

REPORT INFORMATION
  Report Type: Report from Study
  Country: EG (occurrence: EG)
  Receive Date: 20250110
  Receipt Date: 20250203
  Transmission Date: 20250408
  Serious: No
  Sender: SANDOZ
  Company Number: EG-SANDOZ-SDZ2025EG001200

PATIENT
  Age: 9 Year
  Sex: Female

DRUGS (1)
  1. OMNITROPE [Suspect]
     Active Substance: SOMATROPIN
     Indication: Growth hormone deficiency
     Dosage: 1.5 MG, QD (OMNITROPE 10MG)
     Route: 058
     Dates: start: 202208

REACTIONS (3)
  - Therapy interrupted [Unknown]
  - Expired device used [Unknown]
  - Product dose omission issue [Unknown]

NARRATIVE: CASE EVENT DATE: 20250101
